FAERS Safety Report 16556356 (Version 5)
Quarter: 2020Q1

REPORT INFORMATION
  Report Type: Report from Study
  Country: BE (occurrence: BE)
  Receive Date: 20190710
  Receipt Date: 20200203
  Transmission Date: 20200409
  Serious: Yes (Death, Other)
  Sender: FDA-Public Use
  Company Number: BE-GILEAD-2019-0399536

PATIENT
  Age: 58 Year
  Sex: Male
  Weight: 85 kg

DRUGS (16)
  1. OXYNORM [Concomitant]
     Active Substance: OXYCODONE HYDROCHLORIDE
     Dosage: UNK
     Dates: start: 20190415
  2. REDOMEX [Concomitant]
     Active Substance: AMITRIPTYLINE HYDROCHLORIDE
     Indication: CANCER PAIN
     Dosage: UNK
     Dates: start: 20190122
  3. XARELTO [Concomitant]
     Active Substance: RIVAROXABAN
     Dosage: 10 MG, QD
     Dates: start: 20190327, end: 20190401
  4. MORPHINE [Concomitant]
     Active Substance: MORPHINE
     Indication: CANCER PAIN
     Dosage: UNK
     Dates: start: 20190408
  5. EUSAPRIM K [Concomitant]
     Indication: INFECTION PROPHYLAXIS
     Dosage: 160 MG,THREE TIMES A WEEK
     Dates: start: 20190416
  6. DUROGESIC [Concomitant]
     Active Substance: FENTANYL
     Indication: CANCER PAIN
     Dosage: UNK
     Dates: start: 20190122, end: 20190407
  7. LYRICA [Concomitant]
     Active Substance: PREGABALIN
     Dosage: UNK
     Dates: start: 20190412
  8. ACICLOVIR [Concomitant]
     Active Substance: ACYCLOVIR
     Indication: INFECTION PROPHYLAXIS
     Dosage: 400 MG, BID
     Dates: start: 20190416
  9. OXYNORM [Concomitant]
     Active Substance: OXYCODONE HYDROCHLORIDE
     Indication: CANCER PAIN
     Dosage: UNK
     Dates: start: 20190122, end: 20190407
  10. INNOHEP [Concomitant]
     Active Substance: TINZAPARIN SODIUM
     Indication: THROMBOSIS PROPHYLAXIS
     Dosage: 1400 IU, QD
     Dates: start: 20190416, end: 201905
  11. CLEXANE [Concomitant]
     Active Substance: ENOXAPARIN SODIUM
     Dosage: 40 MG, PRN
     Dates: start: 20190403, end: 20190416
  12. CYMBALTA [Concomitant]
     Active Substance: DULOXETINE HYDROCHLORIDE
     Indication: DIFFUSE LARGE B-CELL LYMPHOMA
     Dosage: 30 MG, QD
     Dates: start: 20190924
  13. AXICABTAGENE CILOLEUCEL [Suspect]
     Active Substance: AXICABTAGENE CILOLEUCEL
     Indication: DIFFUSE LARGE B-CELL LYMPHOMA
     Dosage: UNK UNK, ONCE
     Route: 042
     Dates: start: 20190402, end: 20190402
  14. DUROGESIC [Concomitant]
     Active Substance: FENTANYL
     Dosage: UNK
     Dates: start: 20190413
  15. NEURONTIN [Concomitant]
     Active Substance: GABAPENTIN
     Indication: CANCER PAIN
     Dosage: 100 MG, TID
     Dates: start: 20190502
  16. LYRICA [Concomitant]
     Active Substance: PREGABALIN
     Indication: CANCER PAIN
     Dosage: UNK
     Dates: start: 20190328, end: 20190408

REACTIONS (6)
  - Diffuse large B-cell lymphoma [Fatal]
  - Brachial plexopathy [Not Recovered/Not Resolved]
  - Neurotoxicity [Recovered/Resolved]
  - Pneumothorax [Unknown]
  - Neurotoxicity [Recovered/Resolved]
  - Cytokine release syndrome [Recovered/Resolved]

NARRATIVE: CASE EVENT DATE: 20190402
